FAERS Safety Report 5664110-3 (Version None)
Quarter: 2008Q1

REPORT INFORMATION
  Report Type: 
  Country: None (occurrence: None)
  Receive Date: 20080314
  Receipt Date: 20080304
  Transmission Date: 20080703
  Serious: Yes (Other)
  Sender: FDA-Public Use
  Company Number: US-ROCHE-551706

PATIENT
  Age: 83 Year
  Sex: Female

DRUGS (8)
  1. BONIVA [Suspect]
     Indication: OSTEOPOROSIS
     Route: 048
     Dates: start: 20060301
  2. LIPITOR [Concomitant]
  3. VERAPAMIL [Concomitant]
  4. DIAVAN [Concomitant]
  5. ASPIRIN [Concomitant]
     Dosage: DRUG REPORTED AS BABY ASPIRIN
  6. MULTIVITAMIN NOS [Concomitant]
     Dosage: DRUG REPORTED AS MULTIVITAMINS
  7. ASCORBIC ACID [Concomitant]
  8. TEKTURNA [Concomitant]
     Dosage: DRUG REPORTED AS ^TEKTUNA^

REACTIONS (1)
  - CONGENITAL CYSTIC KIDNEY DISEASE [None]
